FAERS Safety Report 17505182 (Version 1)
Quarter: 2020Q1

REPORT INFORMATION
  Report Type: Spontaneous
  Country: NO (occurrence: NO)
  Receive Date: 20200305
  Receipt Date: 20200305
  Transmission Date: 20200409
  Serious: No
  Sender: FDA-Public Use
  Company Number: NO-EMD SERONO-E2B_90075253

PATIENT
  Age: 48 Year
  Sex: Female

DRUGS (2)
  1. MAVENCLAD [Suspect]
     Active Substance: CLADRIBINE
     Indication: MULTIPLE SCLEROSIS
     Dosage: WEEK ONE THERAPY
     Route: 048
     Dates: start: 20190712
  2. MAVENCLAD [Suspect]
     Active Substance: CLADRIBINE
     Dosage: WEEK TWO THERAPY
     Route: 048
     Dates: start: 20190813

REACTIONS (1)
  - Periodontitis [Recovering/Resolving]

NARRATIVE: CASE EVENT DATE: 20190712
